FAERS Safety Report 14940770 (Version 1)
Quarter: 2018Q2

REPORT INFORMATION
  Report Type: Spontaneous
  Country: US (occurrence: US)
  Receive Date: 20180525
  Receipt Date: 20180525
  Transmission Date: 20180711
  Serious: No
  Sender: FDA-Public Use
  Company Number: US-MYLANLABS-2018M1034310

PATIENT
  Sex: Female
  Weight: 63 kg

DRUGS (1)
  1. LEVOTHYROXINE SODIUM TABLETS, USP [Suspect]
     Active Substance: LEVOTHYROXINE SODIUM
     Indication: BLOOD THYROID STIMULATING HORMONE
     Dosage: UNK
     Route: 048
     Dates: end: 20180401

REACTIONS (1)
  - Blood thyroid stimulating hormone abnormal [Unknown]
